FAERS Safety Report 7782152-9 (Version None)
Quarter: 2011Q3

REPORT INFORMATION
  Report Type: 
  Country: None (occurrence: None)
  Receive Date: 20110927
  Receipt Date: 20110916
  Transmission Date: 20111222
  Serious: Yes (Other)
  Sender: FDA-Public Use
  Company Number: FR-CEPHALON-2011003532

PATIENT
  Sex: Male
  Weight: 69 kg

DRUGS (6)
  1. TREANDA [Suspect]
     Indication: MULTIPLE MYELOMA
     Route: 041
  2. LYRICA [Concomitant]
     Dates: start: 20090101
  3. ACETAMINOPHEN [Concomitant]
     Dates: start: 20090101
  4. TRAMADOL HCL [Concomitant]
     Dates: start: 20090101
  5. DIFFU K [Concomitant]
     Dates: start: 20110101
  6. OMEPRAZOLE [Concomitant]
     Dates: start: 20110101

REACTIONS (1)
  - ATRIAL FIBRILLATION [None]
